FAERS Safety Report 25411209 (Version 1)
Quarter: 2025Q2

REPORT INFORMATION
  Report Type: Spontaneous
  Country: US (occurrence: US)
  Receive Date: 20250609
  Receipt Date: 20250609
  Transmission Date: 20250717
  Serious: Yes (Other)
  Sender: APOTEX
  Company Number: US-APOTEX-2025AP008032

PATIENT
  Sex: Female

DRUGS (1)
  1. VARENICLINE [Suspect]
     Active Substance: VARENICLINE
     Indication: Product used for unknown indication
     Route: 065
     Dates: start: 2024

REACTIONS (3)
  - Apnoea [Recovered/Resolved]
  - Oedema peripheral [Unknown]
  - Pain [Unknown]
